FAERS Safety Report 8012363 (Version 3)
Quarter: 2013Q4

REPORT INFORMATION
  Report Type: Spontaneous
  Country: US (occurrence: US)
  Receive Date: 20110628
  Receipt Date: 20131119
  Transmission Date: 20140711
  Serious: Yes (Hospitalization, Other)
  Sender: FDA-Public Use
  Company Number: US-BAYER-2011-052268

PATIENT
  Age: 15 Year
  Sex: Female
  Weight: 90.7 kg

DRUGS (7)
  1. YASMIN [Suspect]
     Dosage: UNK
     Dates: start: 2008, end: 2009
  2. YAZ [Suspect]
     Dosage: UNK
     Dates: start: 2008, end: 2009
  3. ALEVE [Concomitant]
     Indication: PAIN
     Dosage: UNK UNK, TID
     Dates: start: 200907
  4. MIDOL [ACETYLSALICYLIC ACID,CAFFEINE,CINNAMEDRINE,PHENACETIN] [Concomitant]
     Indication: MUSCLE SPASMS
     Dosage: UNK UNK, TID
     Dates: start: 200907
  5. CILOXAN [Concomitant]
     Dosage: 0.3 %, TID
  6. PROVERA [Concomitant]
     Dosage: 10 MG, QD
     Route: 048
  7. ROCEPHIN [Concomitant]
     Dosage: UNK
     Route: 042
     Dates: start: 20090802

REACTIONS (3)
  - Gallbladder disorder [None]
  - Pain [None]
  - Cholecystitis chronic [None]
